FAERS Safety Report 15379394 (Version 3)
Quarter: 2021Q1

REPORT INFORMATION
  Report Type: Report from Study
  Country: US (occurrence: US)
  Receive Date: 20180913
  Receipt Date: 20210205
  Transmission Date: 20210419
  Serious: Yes (Hospitalization)
  Sender: FDA-Public Use
  Company Number: US-ASTELLAS-2018US021940

PATIENT
  Age: 87 Year
  Sex: Male

DRUGS (3)
  1. ENZALUTAMIDE [Suspect]
     Active Substance: ENZALUTAMIDE
     Indication: HORMONE-REFRACTORY PROSTATE CANCER
     Dosage: UNK UNK, UNKNOWN FREQ.
     Route: 065
     Dates: start: 2016
  2. ENZALUTAMIDE [Suspect]
     Active Substance: ENZALUTAMIDE
     Indication: METASTASES TO BONE
     Dosage: UNK UNK, UNKNOWN FREQ.
     Route: 065
     Dates: start: 20190316
  3. LUPRON [Concomitant]
     Active Substance: LEUPROLIDE ACETATE
     Indication: PROSTATE CANCER
     Dosage: UNK UNK, UNKNOWN FREQ.
     Route: 065

REACTIONS (12)
  - Constipation [Recovered/Resolved]
  - Muscular weakness [Recovering/Resolving]
  - Gait inability [Unknown]
  - Muscular weakness [Recovering/Resolving]
  - Peripheral arterial occlusive disease [Unknown]
  - Paraesthesia [Not Recovered/Not Resolved]
  - Hot flush [Recovered/Resolved]
  - Weight decreased [Unknown]
  - Dizziness [Recovering/Resolving]
  - Hypoaesthesia [Not Recovered/Not Resolved]
  - Dry mouth [Unknown]
  - Hyperhidrosis [Recovered/Resolved]

NARRATIVE: CASE EVENT DATE: 20180507
